FAERS Safety Report 7376192-1 (Version None)
Quarter: 2011Q1

REPORT INFORMATION
  Report Type: 
  Country: None (occurrence: None)
  Receive Date: 20110325
  Receipt Date: 20110322
  Transmission Date: 20110831
  Serious: Yes (Death, Hospitalization, Other)
  Sender: FDA-Public Use
  Company Number: US-AMGEN-QUU432802

PATIENT
  Age: 59 Year
  Sex: Female

DRUGS (2)
  1. NPLATE [Suspect]
     Indication: IDIOPATHIC THROMBOCYTOPENIC PURPURA
     Dosage: 700 A?G, UNK
     Dates: start: 20090904, end: 20101126
  2. ELTROMBOPAG [Concomitant]
     Dosage: UNK UNK, UNK
     Dates: start: 20090501

REACTIONS (6)
  - HOSPITALISATION [None]
  - DECUBITUS ULCER [None]
  - MYELODYSPLASTIC SYNDROME [None]
  - FAILURE TO THRIVE [None]
  - INFECTION [None]
  - DEATH [None]
